FAERS Safety Report 13839032 (Version 1)
Quarter: 2017Q3

REPORT INFORMATION
  Report Type: Spontaneous
  Country: ES (occurrence: ES)
  Receive Date: 20170807
  Receipt Date: 20170807
  Transmission Date: 20171127
  Serious: Yes (Hospitalization)
  Sender: FDA-Public Use
  Company Number: ES-ROCHE-1972468

PATIENT
  Age: 43 Year
  Sex: Female

DRUGS (3)
  1. VEMURAFENIB. [Suspect]
     Active Substance: VEMURAFENIB
     Indication: METASTATIC MALIGNANT MELANOMA
     Route: 048
     Dates: start: 20160411
  2. COBIMETINIB. [Suspect]
     Active Substance: COBIMETINIB
     Indication: METASTATIC MALIGNANT MELANOMA
     Dosage: DURING 21 DAYS AND 7 DAYS REST OFF
     Route: 065
     Dates: start: 20160428, end: 20161024
  3. VEMURAFENIB. [Suspect]
     Active Substance: VEMURAFENIB
     Route: 048
     Dates: end: 20161024

REACTIONS (2)
  - Septal panniculitis [Recovered/Resolved]
  - Panniculitis lobular [Recovered/Resolved]

NARRATIVE: CASE EVENT DATE: 20160505
